FAERS Safety Report 7198172-1 (Version None)
Quarter: 2010Q4

REPORT INFORMATION
  Report Type: 
  Country: None (occurrence: None)
  Receive Date: 20101227
  Receipt Date: 20101213
  Transmission Date: 20110411
  Serious: Yes (Other)
  Sender: FDA-Public Use
  Company Number: PHHY2010AR63773

PATIENT
  Sex: Female

DRUGS (1)
  1. EXFORGE [Suspect]
     Indication: BLOOD PRESSURE
     Dosage: 160/5 MG (1 TABLET DAILY)
     Dates: start: 20100701, end: 20100801

REACTIONS (1)
  - GASTRIC HAEMORRHAGE [None]
